FAERS Safety Report 11713376 (Version 1)
Quarter: 2015Q4

REPORT INFORMATION
  Report Type: Spontaneous
  Country: US (occurrence: None)
  Receive Date: 20151105
  Receipt Date: 20151105
  Transmission Date: 20160304
  Serious: No
  Sender: FDA-Public Use
  Company Number: SOM-4675-AE

PATIENT
  Age: 79 Year
  Sex: Female
  Weight: 70.31 kg

DRUGS (1)
  1. SF 5000 PLUS [Suspect]
     Active Substance: SODIUM FLUORIDE
     Indication: DRUG THERAPY
     Route: 061

REACTIONS (3)
  - Haemorrhage [None]
  - Impaired healing [None]
  - Oral herpes [None]

NARRATIVE: CASE EVENT DATE: 20151029
